FAERS Safety Report 7571348-7 (Version None)
Quarter: 2011Q2

REPORT INFORMATION
  Report Type: 
  Country: None (occurrence: None)
  Receive Date: 20110624
  Receipt Date: 20110613
  Transmission Date: 20111010
  Serious: Yes (Hospitalization)
  Sender: FDA-Public Use
  Company Number: B0726982A

PATIENT
  Sex: Female

DRUGS (8)
  1. CITALOPRAM HYDROBROMIDE [Suspect]
     Indication: PSYCHOTIC DISORDER
     Route: 065
  2. QUETIAPINE [Suspect]
     Indication: PSYCHOTIC DISORDER
     Route: 065
  3. MIRTAZAPINE [Suspect]
     Indication: PSYCHOTIC DISORDER
     Route: 065
  4. LAMICTAL [Suspect]
     Indication: PSYCHOTIC DISORDER
     Route: 065
  5. PRAMIPEXOLE DIHYDROCHLORIDE [Suspect]
     Indication: PSYCHOTIC DISORDER
     Route: 065
  6. TRAZODONE HCL [Suspect]
     Indication: PSYCHOTIC DISORDER
     Route: 065
  7. DULOXETIME HYDROCHLORIDE [Suspect]
     Indication: PSYCHOTIC DISORDER
     Route: 065
  8. LORAZEPAM [Suspect]
     Indication: PSYCHOTIC DISORDER
     Route: 065

REACTIONS (5)
  - NEUROLEPTIC MALIGNANT SYNDROME [None]
  - TACHYCARDIA [None]
  - BLOOD LACTATE DEHYDROGENASE INCREASED [None]
  - BLOOD CREATINE PHOSPHOKINASE INCREASED [None]
  - PYREXIA [None]
